FAERS Safety Report 9419249 (Version 1)
Quarter: 2013Q3

REPORT INFORMATION
  Report Type: Spontaneous
  Country: US (occurrence: US)
  Receive Date: 20130725
  Receipt Date: 20130725
  Transmission Date: 20140515
  Serious: No
  Sender: FDA-Public Use
  Company Number: US-GLAXOSMITHKLINE-A0988785A

PATIENT
  Age: 53 Year
  Sex: Female

DRUGS (10)
  1. LAMICTAL [Suspect]
     Indication: CONVULSION
     Dosage: 200MG TWICE PER DAY
     Route: 048
     Dates: start: 201204
  2. PROMETHAZINE [Concomitant]
  3. ULTRAM [Concomitant]
  4. AZATHIOPRINE [Concomitant]
  5. CELEXA [Concomitant]
  6. LIPITOR [Concomitant]
  7. MULTI-VITAMINS [Concomitant]
  8. CALCIUM SUPPLEMENT [Concomitant]
  9. NEXIUM [Concomitant]
  10. PAXIL [Concomitant]

REACTIONS (1)
  - Fall [Recovering/Resolving]
